FAERS Safety Report 16214743 (Version 1)
Quarter: 2019Q2

REPORT INFORMATION
  Report Type: Other
  Country: IT (occurrence: IT)
  Receive Date: 20190418
  Receipt Date: 20190418
  Transmission Date: 20190711
  Serious: Yes (Other)
  Sender: FDA-Public Use
  Company Number: IT-SERVIER-S19003494

PATIENT

DRUGS (18)
  1. TN UNSPECIFIED [FUROSEMIDE] [Concomitant]
     Active Substance: FUROSEMIDE
     Indication: PRODUCT USED FOR UNKNOWN INDICATION
     Dosage: 12.5 MG UNK
     Route: 048
     Dates: start: 20180803
  2. DILATREND [Concomitant]
     Active Substance: CARVEDILOL
     Indication: PRODUCT USED FOR UNKNOWN INDICATION
     Dosage: 1.56 MG UNK
     Route: 065
     Dates: start: 20180809
  3. DELTACORTENE [Concomitant]
     Active Substance: PREDNISONE
     Indication: PRODUCT USED FOR UNKNOWN INDICATION
     Dosage: 70 MG UNK
     Route: 048
     Dates: start: 20180727
  4. MYCOSTATIN [Concomitant]
     Active Substance: NYSTATIN
     Indication: PRODUCT USED FOR UNKNOWN INDICATION
     Dosage: 15 ML UNK
     Route: 048
     Dates: start: 20180720
  5. TN UNSPECIFIED [METHOTREXATE] [Suspect]
     Active Substance: METHOTREXATE
     Indication: ACUTE LYMPHOCYTIC LEUKAEMIA
     Dosage: 12 MG UNK
     Route: 037
     Dates: start: 20180723, end: 20181015
  6. TN UNSPECIFIED [ENALAPRIL MALEATE] [Concomitant]
     Active Substance: ENALAPRIL MALEATE
     Indication: PRODUCT USED FOR UNKNOWN INDICATION
     Dosage: 5 MG UNK
     Route: 048
     Dates: start: 20180803, end: 20180903
  7. TN UNSPECIFIED [ANTITHROMBIN III] [Concomitant]
     Active Substance: ANTITHROMBIN III HUMAN
     Indication: PRODUCT USED FOR UNKNOWN INDICATION
     Dosage: 500 IU UNK
     Route: 042
     Dates: start: 20180806, end: 20180821
  8. PRIVIGEN [Concomitant]
     Active Substance: HUMAN IMMUNOGLOBULIN G
     Indication: PRODUCT USED FOR UNKNOWN INDICATION
     Dosage: 15 G UNK
     Route: 042
     Dates: start: 20180811, end: 20180812
  9. DEURSIL [Concomitant]
     Active Substance: URSODIOL
     Indication: PRODUCT USED FOR UNKNOWN INDICATION
     Dosage: 600 MG UNK
     Route: 048
     Dates: start: 20180811
  10. ZOFRAN [Concomitant]
     Active Substance: ONDANSETRON HYDROCHLORIDE
     Indication: PRODUCT USED FOR UNKNOWN INDICATION
     Dosage: 6 MG UNK
     Route: 042
     Dates: start: 20180723, end: 20180813
  11. BACTRIM [Concomitant]
     Active Substance: SULFAMETHOXAZOLE\TRIMETHOPRIM
     Indication: PRODUCT USED FOR UNKNOWN INDICATION
     Dosage: 14 ML UNK
     Route: 048
     Dates: start: 20180720
  12. ONCASPAR [Suspect]
     Active Substance: PEGASPARGASE
     Indication: ACUTE LYMPHOCYTIC LEUKAEMIA
     Dosage: 2950 IU, UNKNOWN
     Route: 042
     Dates: start: 20180802, end: 20180827
  13. ANTRA [Concomitant]
     Active Substance: OMEPRAZOLE
     Indication: PRODUCT USED FOR UNKNOWN INDICATION
     Dosage: 20 MG UNK
     Route: 042
  14. URBASON [Concomitant]
     Active Substance: METHYLPREDNISOLONE
     Indication: PREMEDICATION
     Dosage: 205 MG UNK
     Route: 042
     Dates: start: 20180721
  15. DIFLUCAN [Concomitant]
     Active Substance: FLUCONAZOLE
     Indication: PRODUCT USED FOR UNKNOWN INDICATION
     Dosage: 200 MG UNK
     Route: 048
     Dates: start: 20180808, end: 20180821
  16. TN UNSPECIFIED [VINCRISTINE] [Suspect]
     Active Substance: VINCRISTINE
     Indication: ACUTE LYMPHOCYTIC LEUKAEMIA
     Dosage: 1.77 MG UNK
     Route: 042
     Dates: start: 20180727, end: 20180830
  17. DAUNOBLASTINA [Suspect]
     Active Substance: DAUNORUBICIN
     Indication: ACUTE LYMPHOCYTIC LEUKAEMIA
     Dosage: 35.4 MG UNK
     Route: 042
     Dates: start: 20180727, end: 20180830
  18. URBASON [Concomitant]
     Active Substance: METHYLPREDNISOLONE
     Dosage: 10 MG UNK
     Route: 037
     Dates: start: 20180723, end: 20181015

REACTIONS (2)
  - Aeromonas infection [Recovered/Resolved]
  - Pyrexia [Recovered/Resolved]

NARRATIVE: CASE EVENT DATE: 20180812
